FAERS Safety Report 9464888 (Version 2)
Quarter: 2013Q3

REPORT INFORMATION
  Report Type: Spontaneous
  Country: US (occurrence: US)
  Receive Date: 20130819
  Receipt Date: 20130819
  Transmission Date: 20140515
  Serious: No
  Sender: FDA-Public Use
  Company Number: US-MYLANLABS-2012S1021595

PATIENT
  Age: 49 Year
  Sex: Female
  Weight: 68.04 kg

DRUGS (2)
  1. DIPHENHYDRAMINE HYDROCHLORIDE INJECTION USP [Suspect]
     Indication: URTICARIA
     Dosage: QID PRN
     Route: 030
     Dates: start: 201210
  2. DIPHENHYDRAMINE HYDROCHLORIDE INJECTION USP [Suspect]
     Indication: PRURITUS
     Dosage: QID PRN
     Route: 030
     Dates: start: 201210

REACTIONS (3)
  - Drug effect decreased [Not Recovered/Not Resolved]
  - Urticaria [Not Recovered/Not Resolved]
  - Pruritus [Not Recovered/Not Resolved]
